FAERS Safety Report 6534785-5 (Version None)
Quarter: 2010Q1

REPORT INFORMATION
  Report Type: 
  Country: None (occurrence: None)
  Receive Date: 20100112
  Receipt Date: 20100105
  Transmission Date: 20100710
  Serious: Yes (Other)
  Sender: FDA-Public Use
  Company Number: FR-BRISTOL-MYERS SQUIBB COMPANY-14900328

PATIENT
  Age: 44 Year
  Sex: Male
  Weight: 70 kg

DRUGS (4)
  1. REYATAZ [Suspect]
     Indication: HIV INFECTION
     Route: 048
  2. NORVIR [Suspect]
     Indication: HIV INFECTION
     Route: 048
  3. PAROXETINE HCL [Concomitant]
     Indication: DEPRESSION
     Route: 048
  4. TRUVADA [Concomitant]
     Indication: HIV INFECTION
     Dosage: 1 DF= 1 TABS
     Route: 048

REACTIONS (2)
  - HYDRONEPHROSIS [None]
  - NEPHROLITHIASIS [None]
